FAERS Safety Report 7540167-X (Version None)
Quarter: 2011Q2

REPORT INFORMATION
  Report Type: 
  Country: None (occurrence: None)
  Receive Date: 20110610
  Receipt Date: 20110530
  Transmission Date: 20111010
  Serious: Yes (Other)
  Sender: FDA-Public Use
  Company Number: CA-JNJFOC-20100706806

PATIENT
  Sex: Male
  Weight: 69.85 kg

DRUGS (7)
  1. PROSCAR [Concomitant]
  2. REMICADE [Suspect]
     Indication: CROHN'S DISEASE
     Route: 042
     Dates: start: 20070101
  3. IMOVANE [Concomitant]
  4. DILAUDID [Concomitant]
     Dosage: 2-4 MG EVERY 6 HOURS AS NEEDED
     Route: 048
  5. ATIVAN [Concomitant]
     Route: 060
  6. WELLBUTRIN [Concomitant]
  7. ESCITALOPRAM [Concomitant]

REACTIONS (1)
  - PANCREATITIS ACUTE [None]
